FAERS Safety Report 4434123-8 (Version None)
Quarter: 2004Q3

REPORT INFORMATION
  Report Type: 
  Country: None (occurrence: None)
  Receive Date: 20040825
  Receipt Date: 20040817
  Transmission Date: 20050211
  Serious: Yes (Hospitalization)
  Sender: FDA-Public Use
  Company Number: 2004227855CA

PATIENT
  Age: 49 Year
  Sex: Female

DRUGS (6)
  1. ALDACTAZIDE [Suspect]
     Dosage: 25 MG, DAILY, ORAL
     Route: 048
     Dates: start: 19990101
  2. ATIVAN [Concomitant]
  3. PANTOLOC ^BYK^ (PANTOPRAZOLE SODIUM) [Concomitant]
  4. NORPRAMIN [Concomitant]
  5. CELEXA [Concomitant]
  6. BUSPAR [Concomitant]

REACTIONS (2)
  - CONFUSIONAL STATE [None]
  - DRUG INEFFECTIVE [None]
